FAERS Safety Report 7085486-9 (Version None)
Quarter: 2010Q4

REPORT INFORMATION
  Report Type: 
  Country: None (occurrence: None)
  Receive Date: 20101105
  Receipt Date: 20101102
  Transmission Date: 20110411
  Serious: Yes (Hospitalization)
  Sender: FDA-Public Use
  Company Number: ES-PFIZER INC-2010139858

PATIENT
  Age: 88 Year
  Sex: Male

DRUGS (7)
  1. ALDACTONE [Suspect]
     Dosage: 18.75 MG, 2X/DAY
     Route: 048
     Dates: start: 20100101, end: 20100408
  2. SUTRIL [Interacting]
     Dosage: 5 MG, 1X/DAY
     Route: 048
     Dates: start: 20091206, end: 20100408
  3. ASPIRIN [Concomitant]
     Indication: ATRIAL FIBRILLATION
     Dosage: 100 MG, 1X/DAY
     Route: 048
     Dates: start: 20090501
  4. DUPHALAC [Concomitant]
     Dosage: 20 G, 3X/DAY
     Route: 048
  5. OMNIC [Concomitant]
     Dosage: 0.4 MG, 1X/DAY
     Route: 048
  6. PARIET [Concomitant]
     Dosage: 20 MG, 1X/DAY
     Route: 048
  7. TARDYFERON [Concomitant]
     Dosage: 80 MG, 1X/DAY
     Route: 048

REACTIONS (3)
  - DRUG INTERACTION [None]
  - HEPATIC ENCEPHALOPATHY [None]
  - HYPONATRAEMIA [None]
